FAERS Safety Report 16806158 (Version 1)
Quarter: 2019Q3

REPORT INFORMATION
  Report Type: Spontaneous
  Country: CA (occurrence: CA)
  Receive Date: 20190913
  Receipt Date: 20190913
  Transmission Date: 20191005
  Serious: Yes (Other)
  Sender: FDA-Public Use
  Company Number: CA-PFIZER INC-2019391046

PATIENT
  Age: 75 Year
  Sex: Female

DRUGS (12)
  1. RESTORALAX [Concomitant]
     Active Substance: POLYETHYLENE GLYCOL 3350
  2. OMNARIS [Concomitant]
     Active Substance: CICLESONIDE
     Dosage: 2 DF, DAILY
     Route: 065
  3. REACTINE [CETIRIZINE HYDROCHLORIDE] [Concomitant]
     Active Substance: CETIRIZINE HYDROCHLORIDE
     Dosage: DAILY
  4. SYMBICORT [Concomitant]
     Active Substance: BUDESONIDE\FORMOTEROL FUMARATE DIHYDRATE
     Dosage: 1 DF, 2X/DAY
  5. PREDNISONE. [Suspect]
     Active Substance: PREDNISONE
     Route: 065
  6. PROLIA [Concomitant]
     Active Substance: DENOSUMAB
     Dosage: EVERY 6 MONTHS
  7. METAMUCIL [Concomitant]
     Active Substance: PLANTAGO SEED
     Dosage: DAILY
  8. SULFASALAZINE. [Suspect]
     Active Substance: SULFASALAZINE
     Route: 054
  9. CORTISONE [Concomitant]
     Active Substance: CORTISONE
     Route: 061
  10. TUZEN [Concomitant]
     Dosage: 2X/DAY
  11. PREVACID [Concomitant]
     Active Substance: LANSOPRAZOLE
     Dosage: 30 MG, 2X/DAY
  12. DICETEL [Concomitant]
     Active Substance: PINAVERIUM BROMIDE
     Dosage: 3X/DAY  WITH MEALS

REACTIONS (5)
  - Frequent bowel movements [Unknown]
  - Weight decreased [Unknown]
  - Joint dislocation [Unknown]
  - Drug ineffective [Unknown]
  - Abdominal pain [Unknown]
